FAERS Safety Report 5812338-1 (Version None)
Quarter: 2008Q3

REPORT INFORMATION
  Report Type: 
  Country: None (occurrence: None)
  Receive Date: 20080716
  Receipt Date: 20080704
  Transmission Date: 20090109
  Serious: Yes (Other)
  Sender: FDA-Public Use
  Company Number: US-PFIZER INC-2008037802

PATIENT
  Sex: Male
  Weight: 93 kg

DRUGS (8)
  1. CHANTIX [Suspect]
     Indication: SMOKING CESSATION THERAPY
  2. PROVENTIL GENTLEHALER [Concomitant]
  3. PERCOCET [Concomitant]
  4. HYZAAR [Concomitant]
  5. ADVAIR DISKUS 100/50 [Concomitant]
  6. CYMBALTA [Concomitant]
  7. SEROQUEL [Concomitant]
  8. XANAX [Concomitant]

REACTIONS (4)
  - ADVERSE DRUG REACTION [None]
  - INSOMNIA [None]
  - MENISCUS LESION [None]
  - RASH [None]
